FAERS Safety Report 9934417 (Version 2)
Quarter: 2014Q1

REPORT INFORMATION
  Report Type: Spontaneous
  Country: DK (occurrence: NL)
  Receive Date: 20140228
  Receipt Date: 20140324
  Transmission Date: 20141002
  Serious: Yes (Congenital Anomaly)
  Sender: FDA-Public Use
  Company Number: NL-FRI-1000054749

PATIENT
  Age: 0 Day
  Sex: Male
  Weight: 3.3 kg

DRUGS (3)
  1. LEXAPRO [Suspect]
     Route: 064
     Dates: end: 20130626
  2. SERTRALINE [Suspect]
     Route: 064
     Dates: start: 20130626
  3. FOLIC ACID [Concomitant]
     Route: 064
     Dates: start: 201303

REACTIONS (1)
  - Coarctation of the aorta [Recovering/Resolving]
